FAERS Safety Report 8463672-0 (Version None)
Quarter: 2012Q2

REPORT INFORMATION
  Report Type: 
  Country: None (occurrence: None)
  Receive Date: 20120625
  Receipt Date: 20120619
  Transmission Date: 20120825
  Serious: Yes (Hospitalization, Other)
  Sender: FDA-Public Use
  Company Number: DE-ROCHE-1063529

PATIENT
  Age: 66 Year
  Sex: Male
  Weight: 69 kg

DRUGS (10)
  1. TRAMADOL HCL [Concomitant]
     Dates: start: 20120330
  2. VEMURAFENIB [Suspect]
     Route: 048
     Dates: start: 20120606
  3. METOPROLOL TARTRATE [Concomitant]
     Dates: start: 20120202
  4. NITRENDIPIN [Concomitant]
     Dates: start: 20120202
  5. VEMURAFENIB [Suspect]
     Indication: MALIGNANT MELANOMA
     Route: 048
     Dates: start: 20120203
  6. VEMURAFENIB [Suspect]
     Dosage: DATE OF LAST DOSE PRIOR TO EVENT: 03/JUN/2012
     Route: 048
     Dates: start: 20120525, end: 20120604
  7. PANTOPRAZOLE [Concomitant]
     Dates: start: 20120329
  8. VEMURAFENIB [Suspect]
     Dosage: LAST DOSE 05/APR/2012
     Route: 048
     Dates: start: 20120330
  9. SIMVASTATIN [Concomitant]
     Dates: start: 20120202
  10. METOCLOPRAMIDE [Concomitant]
     Dates: start: 20120330

REACTIONS (2)
  - MALIGNANT MELANOMA [None]
  - METASTASES TO SKIN [None]
